FAERS Safety Report 5520836-3 (Version None)
Quarter: 2007Q4

REPORT INFORMATION
  Report Type: 
  Country: None (occurrence: None)
  Receive Date: 20071119
  Receipt Date: 20071112
  Transmission Date: 20080405
  Serious: Yes (Other)
  Sender: FDA-Public Use
  Company Number: A0693920A

PATIENT
  Sex: Female

DRUGS (5)
  1. ADVAIR DISKUS 100/50 [Suspect]
     Indication: CHRONIC OBSTRUCTIVE PULMONARY DISEASE
     Dosage: 1PUFF TWICE PER DAY
     Route: 055
     Dates: start: 20071025
  2. ALBUTEROL [Concomitant]
  3. SPIRIVA [Concomitant]
  4. BLOOD PRESSURE MEDICATION [Concomitant]
  5. ANTI-ANXIETY MED- NAME UNKNOWN [Concomitant]
     Indication: ANXIETY

REACTIONS (3)
  - ADVERSE EVENT [None]
  - DYSGRAPHIA [None]
  - TREMOR [None]
